FAERS Safety Report 13950546 (Version 1)
Quarter: 2017Q3

REPORT INFORMATION
  Report Type: Spontaneous
  Country: US (occurrence: US)
  Receive Date: 20170908
  Receipt Date: 20170908
  Transmission Date: 20171128
  Serious: No
  Sender: FDA-Public Use
  Company Number: US-ROCHE-1137656

PATIENT
  Age: 79 Year
  Sex: Female

DRUGS (2)
  1. LEFLUNOMIDE. [Concomitant]
     Active Substance: LEFLUNOMIDE
  2. RITUXAN [Suspect]
     Active Substance: RITUXIMAB
     Indication: RHEUMATOID ARTHRITIS
     Route: 042
     Dates: start: 2009, end: 20101201

REACTIONS (10)
  - Pain in extremity [Unknown]
  - Feeding disorder [Unknown]
  - Rheumatoid nodule [Unknown]
  - Arthralgia [Unknown]
  - Toothache [Unknown]
  - Infection [Unknown]
  - Foot deformity [Unknown]
  - Musculoskeletal stiffness [Unknown]
  - Balance disorder [Unknown]
  - Oral pain [Unknown]

NARRATIVE: CASE EVENT DATE: 201101
